FAERS Safety Report 6645696-9 (Version None)
Quarter: 2010Q1

REPORT INFORMATION
  Report Type: 
  Country: None (occurrence: None)
  Receive Date: 20100318
  Receipt Date: 20100318
  Transmission Date: 20100710
  Serious: No
  Sender: FDA-Public Use
  Company Number: None

PATIENT
  Weight: 69.8539 kg

DRUGS (1)
  1. STRATTERA [Suspect]
     Indication: ATTENTION DEFICIT/HYPERACTIVITY DISORDER
     Dosage: 18MGS. ONCE PER DAY PO
     Route: 048

REACTIONS (3)
  - ANGER [None]
  - DRUG INEFFECTIVE [None]
  - FEAR [None]
